FAERS Safety Report 4854540-1 (Version None)
Quarter: 2005Q4

REPORT INFORMATION
  Report Type: 
  Country: None (occurrence: None)
  Receive Date: 20051215
  Receipt Date: 20051205
  Transmission Date: 20060501
  Serious: Yes (Other)
  Sender: FDA-Public Use
  Company Number: FR-ROCHE-427682

PATIENT
  Age: 70 Year
  Sex: Female

DRUGS (2)
  1. INTERFERON ALFA [Suspect]
     Indication: HEPATITIS C
     Route: 065
     Dates: start: 20010615, end: 20020615
  2. COPEGUS [Suspect]
     Indication: HEPATITIS C
     Route: 065
     Dates: start: 20010615, end: 20020615

REACTIONS (1)
  - HEPATIC NEOPLASM MALIGNANT [None]
